FAERS Safety Report 12456571 (Version 1)
Quarter: 2016Q2

REPORT INFORMATION
  Report Type: Spontaneous
  Country: None (occurrence: DK)
  Receive Date: 20160610
  Receipt Date: 20160610
  Transmission Date: 20160815
  Serious: Yes (Hospitalization, Disabling)
  Sender: FDA-Public Use
  Company Number: DK-MEDAC PHARMA, INC.-1053674

PATIENT
  Age: 57 Year
  Sex: Male

DRUGS (12)
  1. CORDARONE [Concomitant]
     Active Substance: AMIODARONE HYDROCHLORIDE
  2. HJERTEMAGNYL [Suspect]
     Active Substance: ASPIRIN\MAGNESIUM OXIDE
     Route: 048
     Dates: start: 2003, end: 20160222
  3. CRESTOR [Concomitant]
     Active Substance: ROSUVASTATIN CALCIUM
  4. METFORMIN [Concomitant]
     Active Substance: METFORMIN HYDROCHLORIDE
  5. TRAMADOL HYDROCHLORIDE. [Concomitant]
     Active Substance: TRAMADOL HYDROCHLORIDE
  6. THYCAPZOL [Concomitant]
     Active Substance: METHIMAZOLE
  7. OMEPRAZOLE. [Concomitant]
     Active Substance: OMEPRAZOLE
  8. METOPROLOL. [Concomitant]
     Active Substance: METOPROLOL
  9. METEX [Suspect]
     Active Substance: METFORMIN HYDROCHLORIDE
     Indication: PSORIATIC ARTHROPATHY
     Route: 030
     Dates: start: 201009
  10. PRADAXA [Suspect]
     Active Substance: DABIGATRAN ETEXILATE MESYLATE
     Route: 048
     Dates: start: 20130605, end: 20160219
  11. FOLIC ACID. [Concomitant]
     Active Substance: FOLIC ACID
  12. LOSARTAN POTASSIUM. [Concomitant]
     Active Substance: LOSARTAN POTASSIUM

REACTIONS (8)
  - Brain midline shift [Recovering/Resolving]
  - Vascular malformation [Unknown]
  - Eye pain [Unknown]
  - Motor dysfunction [Recovering/Resolving]
  - Cerebral haematoma [Unknown]
  - Hemianopia homonymous [Recovering/Resolving]
  - Hemiparesis [Recovering/Resolving]
  - Brain oedema [Unknown]

NARRATIVE: CASE EVENT DATE: 201602
